FAERS Safety Report 9206428 (Version 2)
Quarter: 2013Q2

REPORT INFORMATION
  Report Type: Report from Study
  Country: BR (occurrence: BR)
  Receive Date: 20130403
  Receipt Date: 20130603
  Transmission Date: 20140414
  Serious: Yes (Other)
  Sender: FDA-Public Use
  Company Number: PHHY2013BR030973

PATIENT
  Age: 49 Year
  Sex: Female

DRUGS (5)
  1. DIOVAN AMLO FIX [Suspect]
     Indication: HYPERTENSION
     Dosage: 1 DF, (320MG VALS /5 MG AMLO), DAILY
     Route: 048
     Dates: start: 20120416
  2. HYDROCHLOROTHIAZIDE [Suspect]
     Dosage: UNK UKN, UNK
  3. PROPANOLOL [Concomitant]
     Indication: HYPERTENSION
     Dosage: 2 DF (40MG), DAILY
     Route: 048
  4. AMLODIPINE [Concomitant]
     Indication: HYPERTENSION
     Dosage: 1 DF (5MG), DAILY
     Route: 048
  5. ATENSINA [Concomitant]
     Indication: HYPERTENSION
     Dosage: 3 DF (200MG), DAILY
     Route: 048

REACTIONS (5)
  - Breast cancer [Not Recovered/Not Resolved]
  - Nodule [Unknown]
  - Menstrual disorder [Unknown]
  - Malaise [Unknown]
  - Blood pressure inadequately controlled [Recovered/Resolved]
